FAERS Safety Report 20548424 (Version 1)
Quarter: 2022Q1

REPORT INFORMATION
  Report Type: Spontaneous
  Country: US (occurrence: US)
  Receive Date: 20220303
  Receipt Date: 20220303
  Transmission Date: 20220424
  Serious: No
  Sender: FDA-Public Use
  Company Number: US-ALLERGAN-2108387US

PATIENT
  Sex: Female

DRUGS (9)
  1. RESTASIS [Suspect]
     Active Substance: CYCLOSPORINE
     Indication: Dry eye
     Dosage: 2 GTT, Q12H
     Route: 047
     Dates: start: 20210303
  2. LOTEMAX [Concomitant]
     Active Substance: LOTEPREDNOL ETABONATE
     Indication: Dry eye
     Route: 047
  3. LOTEMAX [Concomitant]
     Active Substance: LOTEPREDNOL ETABONATE
     Indication: Intraocular pressure increased
  4. SYSTANE LUBRICANT [Concomitant]
     Active Substance: POLYETHYLENE GLYCOL 400\PROPYLENE GLYCOL
     Indication: Dry eye
     Dosage: UNK
     Route: 047
  5. steroid eye drops [Concomitant]
     Indication: Dry eye
     Dosage: UNK
     Route: 047
  6. ERYTHROMYCIN [Concomitant]
     Active Substance: ERYTHROMYCIN
     Dosage: UNK
     Route: 047
  7. PREDNISOLONE [Concomitant]
     Active Substance: PREDNISOLONE
     Indication: Dry eye
     Dosage: UNK
     Route: 047
  8. Baby shampoo eye wash [Concomitant]
     Indication: Dry eye
     Dosage: UNK
     Route: 061
  9. FLAXSEED [Concomitant]
     Active Substance: FLAX SEED
     Indication: Dry eye
     Dosage: UNK

REACTIONS (2)
  - Dry skin [Recovered/Resolved]
  - Off label use [Unknown]
